FAERS Safety Report 19988727 (Version 1)
Quarter: 2021Q4

REPORT INFORMATION
  Report Type: Spontaneous
  Country: US (occurrence: US)
  Receive Date: 20211024
  Receipt Date: 20211024
  Transmission Date: 20220303
  Serious: Yes (Other)
  Sender: FDA-Public Use
  Company Number: US-LUPIN PHARMACEUTICALS INC.-2021-20474

PATIENT
  Age: 74 Year
  Sex: Male

DRUGS (5)
  1. HYDROXYCHLOROQUINE [Interacting]
     Active Substance: HYDROXYCHLOROQUINE
     Indication: Rheumatoid arthritis
     Dosage: 200 MILLIGRAM, QD
     Route: 065
  2. LEFLUNOMIDE [Interacting]
     Active Substance: LEFLUNOMIDE
     Indication: Rheumatoid arthritis
     Dosage: 20 MILLIGRAM, QD
     Route: 065
  3. ETANERCEPT [Interacting]
     Active Substance: ETANERCEPT
     Indication: Rheumatoid arthritis
     Dosage: 25 MILLIGRAM, WEEKLY
     Route: 065
  4. MODERNA COVID-19 VACCINE [Interacting]
     Active Substance: CX-024414
     Indication: COVID-19 immunisation
     Dosage: UNK (FIRST DOSE)
     Route: 065
     Dates: start: 2021
  5. MODERNA COVID-19 VACCINE [Interacting]
     Active Substance: CX-024414
     Dosage: UNK (SECOND DOSE)
     Route: 065
     Dates: start: 20210211

REACTIONS (2)
  - Vaccination failure [Unknown]
  - Inhibitory drug interaction [Unknown]

NARRATIVE: CASE EVENT DATE: 20210101
